FAERS Safety Report 22852546 (Version 2)
Quarter: 2023Q4

REPORT INFORMATION
  Report Type: Report from Study
  Country: US (occurrence: US)
  Receive Date: 20230823
  Receipt Date: 20231016
  Transmission Date: 20240110
  Serious: Yes (Hospitalization, Other)
  Sender: FDA-Public Use
  Company Number: US-ABBVIE-5302333

PATIENT
  Age: 69 Year
  Sex: Female
  Weight: 61.234 kg

DRUGS (8)
  1. RINVOQ [Suspect]
     Active Substance: UPADACITINIB
     Indication: Psoriasis
     Route: 048
     Dates: end: 20230731
  2. DULOXETINE [Concomitant]
     Active Substance: DULOXETINE
     Indication: Anxiety
     Route: 048
     Dates: start: 20230711
  3. LEVOTHYROXINE [Concomitant]
     Active Substance: LEVOTHYROXINE
     Indication: Thyroid disorder
     Route: 048
  4. LEFLUNOMIDE [Concomitant]
     Active Substance: LEFLUNOMIDE
     Indication: Arthralgia
     Dosage: FREQUENCY TEXT: HALF DAY FOR 7 DAYS, THEN 1 TAB
     Route: 048
     Dates: start: 20230718
  5. PAXIL [Concomitant]
     Active Substance: PAROXETINE HYDROCHLORIDE
     Indication: Product used for unknown indication
  6. MORPHINE SULFATE [Concomitant]
     Active Substance: MORPHINE SULFATE
     Indication: Pain management
     Route: 048
  7. PREDNISONE [Concomitant]
     Active Substance: PREDNISONE
     Indication: Myalgia
     Route: 048
  8. FENOFIBRATE [Concomitant]
     Active Substance: FENOFIBRATE
     Indication: Blood cholesterol
     Route: 048

REACTIONS (7)
  - Tendon injury [Unknown]
  - Fall [Not Recovered/Not Resolved]
  - Infection [Recovering/Resolving]
  - Ligament injury [Unknown]
  - Neck pain [Unknown]
  - Rheumatoid arthritis [Unknown]
  - Multiple injuries [Unknown]

NARRATIVE: CASE EVENT DATE: 20230401
